FAERS Safety Report 5597564-1 (Version None)
Quarter: 2008Q1

REPORT INFORMATION
  Report Type: 
  Country: None (occurrence: None)
  Receive Date: 20080121
  Receipt Date: 20080114
  Transmission Date: 20080703
  Serious: Yes (Other)
  Sender: FDA-Public Use
  Company Number: A0694000A

PATIENT
  Sex: Female

DRUGS (1)
  1. MALARONE [Suspect]
     Indication: MALARIA PROPHYLAXIS

REACTIONS (5)
  - ALOPECIA [None]
  - ALOPECIA EFFLUVIUM [None]
  - ARTHROPOD BITE [None]
  - HEPATIC ENZYME INCREASED [None]
  - SCAR [None]
